FAERS Safety Report 24616850 (Version 1)
Quarter: 2024Q4

REPORT INFORMATION
  Report Type: Spontaneous
  Country: US (occurrence: US)
  Receive Date: 20241114
  Receipt Date: 20241114
  Transmission Date: 20250114
  Serious: No
  Sender: OTSUKA
  Company Number: US-OTSUKA-2024_013201

PATIENT
  Age: 7 Year
  Sex: Male

DRUGS (2)
  1. NUEDEXTA [Suspect]
     Active Substance: DEXTROMETHORPHAN HYDROBROMIDE\QUINIDINE SULFATE
     Indication: Autism spectrum disorder
     Dosage: 1 DF (20-10 MG), QD
     Route: 065
     Dates: start: 20240314
  2. NUEDEXTA [Suspect]
     Active Substance: DEXTROMETHORPHAN HYDROBROMIDE\QUINIDINE SULFATE
     Indication: Emotional disorder

REACTIONS (2)
  - Drug effective for unapproved indication [Not Recovered/Not Resolved]
  - Off label use [Not Recovered/Not Resolved]

NARRATIVE: CASE EVENT DATE: 20240314
